FAERS Safety Report 14861543 (Version 1)
Quarter: 2018Q2

REPORT INFORMATION
  Report Type: Spontaneous
  Country: US (occurrence: US)
  Receive Date: 20180423
  Receipt Date: 20180423
  Transmission Date: 20180711
  Serious: Yes (Other)
  Sender: FDA-Public Use
  Company Number: None

PATIENT
  Age: 82 Year
  Sex: Male
  Weight: 72.6 kg

DRUGS (5)
  1. DIPHENHYDRAMINE 50 MG [Concomitant]
     Dates: start: 20180327
  2. RITUXIMAB. [Suspect]
     Active Substance: RITUXIMAB
     Indication: WALDENSTROM^S MACROGLOBULINAEMIA
     Dosage: ?          OTHER FREQUENCY:Q28DAYS;?
     Route: 042
  3. ACETAMINOPHEN 650 MG [Concomitant]
     Active Substance: ACETAMINOPHEN
     Dates: start: 20180327
  4. RITUXIMAB. [Suspect]
     Active Substance: RITUXIMAB
     Indication: WALDENSTROM^S MACROGLOBULINAEMIA
     Dosage: ?          OTHER FREQUENCY:Q28DAYS;?
     Route: 042
  5. ALLOPURINOL 300 MG [Concomitant]
     Active Substance: ALLOPURINOL
     Dates: start: 20180326

REACTIONS (6)
  - Hyperhidrosis [None]
  - Urinary incontinence [None]
  - Confusional state [None]
  - Chest discomfort [None]
  - Infusion related reaction [None]
  - Chills [None]

NARRATIVE: CASE EVENT DATE: 20180327
